FAERS Safety Report 8770468 (Version 1)
Quarter: 2012Q4

REPORT INFORMATION
  Report Type: 
  Country: MX (occurrence: MX)
  Receive Date: 20120906
  Receipt Date: 20120906
  Transmission Date: 20130627
  Serious: Yes (Hospitalization)
  Sender: FDA-Public Use
  Company Number: PHHY2012MX076246

PATIENT
  Sex: Female

DRUGS (1)
  1. GLIVEC [Suspect]
     Dosage: 400 mg, daily
     Route: 048
     Dates: start: 20120807

REACTIONS (3)
  - Cerebrovascular accident [Unknown]
  - Feeling abnormal [Unknown]
  - Headache [Unknown]
